FAERS Safety Report 19661122 (Version 1)
Quarter: 2021Q3

REPORT INFORMATION
  Report Type: Spontaneous
  Country: US (occurrence: US)
  Receive Date: 20210805
  Receipt Date: 20210805
  Transmission Date: 20211014
  Serious: No
  Sender: FDA-Public Use
  Company Number: US-GLENMARK PHARMACEUTICALS-2021GMK053722

PATIENT

DRUGS (4)
  1. SALICYLIC ACID. [Suspect]
     Active Substance: SALICYLIC ACID
     Indication: PRODUCT USED FOR UNKNOWN INDICATION
     Dosage: UNK
     Route: 065
  2. ADAPALENE. [Suspect]
     Active Substance: ADAPALENE
     Indication: MILIA
  3. ADAPALENE. [Suspect]
     Active Substance: ADAPALENE
     Indication: CHLOASMA
     Dosage: UNK, QD (USED EVERY DAY IN THE BEGINNING FOR 2?3 WEEKS)
     Route: 065
     Dates: start: 202011, end: 2020
  4. ADAPALENE. [Suspect]
     Active Substance: ADAPALENE
     Indication: ACNE
     Dosage: QOD (USED EVERY OTHER DAY, AMOUNT USED WAS LESS THAN PEA SIZE AMOUNT)
     Route: 065
     Dates: start: 2020, end: 202103

REACTIONS (6)
  - Drug ineffective for unapproved indication [Unknown]
  - Skin exfoliation [Recovering/Resolving]
  - Drug ineffective [Unknown]
  - Dry skin [Recovering/Resolving]
  - Erythema [Recovering/Resolving]
  - Burning sensation [Recovering/Resolving]
